FAERS Safety Report 5738906-3 (Version None)
Quarter: 2008Q2

REPORT INFORMATION
  Report Type: 
  Country: None (occurrence: None)
  Receive Date: 20080513
  Receipt Date: 20080502
  Transmission Date: 20081010
  Serious: Yes (Hospitalization)
  Sender: FDA-Public Use
  Company Number: 196908

PATIENT
  Age: 33 Year
  Sex: Male
  Weight: 54.4316 kg

DRUGS (2)
  1. AVONEX [Suspect]
     Indication: MULTIPLE SCLEROSIS
     Dosage: IM
     Route: 030
     Dates: start: 20030709
  2. MEDICATION (NOS) [Concomitant]

REACTIONS (6)
  - APPENDICITIS [None]
  - INFUSION SITE EXTRAVASATION [None]
  - INJECTION SITE EXTRAVASATION [None]
  - MEDICAL DEVICE COMPLICATION [None]
  - MULTIPLE SCLEROSIS [None]
  - PARAPLEGIA [None]
